FAERS Safety Report 5089387-7 (Version None)
Quarter: 2006Q3

REPORT INFORMATION
  Report Type: 
  Country: None (occurrence: None)
  Receive Date: 20060727
  Receipt Date: 20060510
  Transmission Date: 20061208
  Serious: Yes (Other)
  Sender: FDA-Public Use
  Company Number: 2006063506

PATIENT
  Sex: Male
  Weight: 86.1834 kg

DRUGS (5)
  1. LYRICA [Suspect]
     Indication: HYPOAESTHESIA
     Dosage: 150 MG (75 MG, 2 IN 1 D)
     Dates: start: 20060101
  2. LYRICA [Suspect]
     Indication: NEURALGIA
     Dosage: 150 MG (75 MG, 2 IN 1 D)
     Dates: start: 20060101
  3. LYRICA [Suspect]
     Indication: PARAESTHESIA
     Dosage: 150 MG (75 MG, 2 IN 1 D)
     Dates: start: 20060101
  4. BENICAR [Concomitant]
  5. NEXIUM [Concomitant]

REACTIONS (4)
  - CONTUSION [None]
  - DRUG EFFECT DECREASED [None]
  - INTERNATIONAL NORMALISED RATIO INCREASED [None]
  - PROTHROMBIN TIME PROLONGED [None]
